FAERS Safety Report 5632349-9 (Version None)
Quarter: 2008Q1

REPORT INFORMATION
  Report Type: 
  Country: None (occurrence: None)
  Receive Date: 20080220
  Receipt Date: 20080207
  Transmission Date: 20080703
  Serious: Yes (Hospitalization)
  Sender: FDA-Public Use
  Company Number: GB-ELI_LILLY_AND_COMPANY-GB200802001979

PATIENT
  Age: 45 Year
  Sex: Female

DRUGS (2)
  1. CYMBALTA [Suspect]
     Dosage: 60 MG, UNKNOWN
     Route: 065
  2. CYMBALTA [Suspect]
     Dosage: UNK, UNKNOWN
     Route: 065

REACTIONS (1)
  - LOWER RESPIRATORY TRACT INFECTION [None]
